FAERS Safety Report 6963768-6 (Version None)
Quarter: 2010Q3

REPORT INFORMATION
  Report Type: 
  Country: None (occurrence: None)
  Receive Date: 20100902
  Receipt Date: 20100825
  Transmission Date: 20110219
  Serious: Yes (Death)
  Sender: FDA-Public Use
  Company Number: US-ROCHE-724208

PATIENT
  Sex: Female
  Weight: 51.7 kg

DRUGS (17)
  1. BEVACIZUMAB [Suspect]
     Dosage: INDUCTION THERAPY COMPLETED
     Route: 042
     Dates: start: 20100402, end: 20100610
  2. BEVACIZUMAB [Suspect]
     Dosage: MAINTENANCE THERAPY
     Route: 042
     Dates: start: 20100715
  3. PACLITAXEL [Suspect]
     Route: 042
     Dates: start: 20100402, end: 20100610
  4. CARBOPLATIN [Suspect]
     Dosage: DOSE:6 AUC
     Route: 042
     Dates: start: 20100402, end: 20100610
  5. DEXAMETHASONE [Concomitant]
     Dates: start: 20100402
  6. BENADRYL [Concomitant]
     Dates: start: 20100402
  7. PALONOSETRON [Concomitant]
     Dates: start: 20100402
  8. RANITIDINE [Concomitant]
     Dates: start: 20100402
  9. JANTOVEN [Concomitant]
     Dates: start: 20100319
  10. ZOMETA [Concomitant]
     Dates: start: 20100402
  11. ACETYLSALICYLIC ACID [Concomitant]
     Dates: start: 20100329
  12. LORTAB [Concomitant]
     Dates: start: 20100328
  13. OMEPRAZOLE [Concomitant]
  14. COMPAZINE [Concomitant]
     Dates: start: 20100402
  15. COLACE [Concomitant]
     Dates: start: 20100428
  16. AMLODIPINE [Concomitant]
     Dates: start: 20100413
  17. CIPROFLOXACIN [Concomitant]
     Dates: start: 20100322, end: 20100601

REACTIONS (1)
  - CARDIAC ARREST [None]
